FAERS Safety Report 8174090-7 (Version None)
Quarter: 2012Q1

REPORT INFORMATION
  Report Type: 
  Country: None (occurrence: None)
  Receive Date: 20120229
  Receipt Date: 20120223
  Transmission Date: 20120608
  Serious: Yes (Other)
  Sender: FDA-Public Use
  Company Number: DE-ROCHE-1037442

PATIENT
  Sex: Female
  Weight: 85 kg

DRUGS (7)
  1. ACTEMRA [Suspect]
     Indication: RHEUMATOID ARTHRITIS
     Route: 042
     Dates: start: 20100423, end: 20100625
  2. ACTEMRA [Suspect]
     Route: 042
     Dates: start: 20100908, end: 20101103
  3. ACTEMRA [Suspect]
     Route: 042
     Dates: start: 20110103
  4. PREDNISOLONE [Concomitant]
     Indication: RHEUMATOID ARTHRITIS
     Dates: start: 19941101
  5. METHOTREXATE [Concomitant]
     Dates: start: 20100924, end: 20101003
  6. METHOTREXATE [Concomitant]
     Indication: RHEUMATOID ARTHRITIS
     Dates: start: 20081001
  7. DICLOFENAC SODIUM [Concomitant]
     Indication: RHEUMATOID ARTHRITIS
     Dates: start: 20010101

REACTIONS (6)
  - ERYSIPELAS [None]
  - ULCER [None]
  - BRONCHITIS [None]
  - PNEUMONIA [None]
  - ORAL HERPES [None]
  - CARDIOMYOPATHY [None]
